FAERS Safety Report 20262630 (Version 1)
Quarter: 2021Q4

REPORT INFORMATION
  Report Type: Spontaneous
  Country: CA (occurrence: CA)
  Receive Date: 20211231
  Receipt Date: 20211231
  Transmission Date: 20220303
  Serious: Yes (Life-Threatening)
  Sender: FDA-Public Use
  Company Number: None

PATIENT
  Age: 9 Year
  Sex: Male
  Weight: 32 kg

DRUGS (24)
  1. METHOTREXATE [Suspect]
     Active Substance: METHOTREXATE
     Indication: Burkitt^s lymphoma
     Route: 042
  2. RITUXAN [Suspect]
     Active Substance: RITUXIMAB
     Indication: Burkitt^s lymphoma
     Dosage: ONCE
     Route: 042
  3. CYTARABINE [Suspect]
     Active Substance: CYTARABINE
     Indication: Burkitt^s lymphoma
     Route: 042
  4. ALTEPLASE [Concomitant]
     Active Substance: ALTEPLASE
     Dosage: LIQUID INTRAVENOUS
  5. AMLODIPINE [Concomitant]
     Active Substance: AMLODIPINE BESYLATE
  6. BETAMETHASONE [Concomitant]
     Active Substance: BETAMETHASONE
     Dosage: OINTMENT TOPICAL
  7. BISACODYL [Concomitant]
     Active Substance: BISACODYL
  8. DIPHENHYDRAMINE [Concomitant]
     Active Substance: DIPHENHYDRAMINE
  9. FILGRASTIM [Concomitant]
     Active Substance: FILGRASTIM
  10. FISH OIL [Concomitant]
     Active Substance: FISH OIL
  11. FLUCONAZOLE [Concomitant]
     Active Substance: FLUCONAZOLE
  12. FLUTICASONE [Concomitant]
     Active Substance: FLUTICASONE
     Dosage: METERED DOSE
  13. HYDROCORTISONE [Concomitant]
     Active Substance: HYDROCORTISONE
  14. LEUCOVORIN [Concomitant]
     Active Substance: LEUCOVORIN
  15. MAGNESIUM [Concomitant]
     Active Substance: MAGNESIUM
  16. MYCAMINE [Concomitant]
     Active Substance: MICAFUNGIN SODIUM
     Dosage: POWDER FOR SOLUTION INTRAVENOUS
  17. ONDANSETRON [Concomitant]
     Active Substance: ONDANSETRON
  18. PENTAMIDINE [Concomitant]
     Active Substance: PENTAMIDINE
     Dosage: 300 MG, ISETHIONATE INJECTION BP
  19. PIPERACILLIN AND TAZOBACTAM [Concomitant]
     Active Substance: PIPERACILLIN SODIUM\TAZOBACTAM SODIUM
     Dosage: POWDER FOR SOLUTION INTRAVENOUS
  20. POLYETHYLENE GLYCOL [Concomitant]
     Active Substance: POLYETHYLENE GLYCOL
  21. POTASSIUM [Concomitant]
     Active Substance: POTASSIUM
     Dosage: SOLUTION INTRAVENOUS
  22. SODIUM PICOSULFATE [Concomitant]
     Active Substance: SODIUM PICOSULFATE
  23. TACROLIMUS [Concomitant]
     Active Substance: TACROLIMUS
  24. VALACYCLOVIR HYDROCHLORIDE [Concomitant]
     Active Substance: VALACYCLOVIR HYDROCHLORIDE

REACTIONS (4)
  - Rectal haemorrhage [Recovered/Resolved]
  - Febrile neutropenia [Recovered/Resolved]
  - Diarrhoea [Recovered/Resolved]
  - Body temperature fluctuation [Recovered/Resolved]
